FAERS Safety Report 7380548-0 (Version None)
Quarter: 2011Q1

REPORT INFORMATION
  Report Type: 
  Country: None (occurrence: None)
  Receive Date: 20110325
  Receipt Date: 20110325
  Transmission Date: 20110831
  Serious: No
  Sender: FDA-Public Use
  Company Number: None

PATIENT
  Sex: Female
  Weight: 92.5 kg

DRUGS (4)
  1. DIPHENHYDRAMINE HCL [Concomitant]
  2. ZIPRASIDONE [Concomitant]
  3. INVEGA [Suspect]
     Indication: SCHIZOPHRENIA, PARANOID TYPE
     Dosage: 6MG QD PO
     Route: 048
     Dates: start: 20110311, end: 20110317
  4. ACETAMINOPHEN [Concomitant]

REACTIONS (1)
  - OEDEMA PERIPHERAL [None]
